FAERS Safety Report 5624881-9 (Version None)
Quarter: 2008Q1

REPORT INFORMATION
  Report Type: 
  Country: None (occurrence: None)
  Receive Date: 20080213
  Receipt Date: 20080208
  Transmission Date: 20080703
  Serious: Yes (Hospitalization)
  Sender: FDA-Public Use
  Company Number: DE-ASTRAZENECA-2008PK00282

PATIENT
  Age: 84 Year
  Sex: Female

DRUGS (16)
  1. SEROQUEL [Interacting]
     Route: 048
     Dates: start: 20071004, end: 20071004
  2. SEROQUEL [Interacting]
     Route: 048
     Dates: start: 20071005, end: 20071005
  3. SEROQUEL [Interacting]
     Route: 048
     Dates: start: 20071006, end: 20071007
  4. SEROQUEL [Interacting]
     Route: 048
     Dates: start: 20071008, end: 20071008
  5. SEROQUEL [Interacting]
     Route: 048
     Dates: start: 20071009, end: 20071010
  6. SEROQUEL [Interacting]
     Route: 048
     Dates: start: 20071011, end: 20071011
  7. SEROQUEL [Interacting]
     Route: 048
     Dates: start: 20071012, end: 20071012
  8. ARICEPT [Interacting]
     Route: 048
     Dates: start: 20071010, end: 20071011
  9. TAVOR [Suspect]
     Route: 048
     Dates: start: 20071010, end: 20071010
  10. TAVOR [Suspect]
     Route: 048
     Dates: start: 20071011, end: 20071011
  11. TAVOR [Suspect]
     Route: 048
     Dates: start: 20071012
  12. TRIAMTERENE AND HYDROCHLOROTHIAZIDE [Concomitant]
     Dosage: 1 TABLET PER DAY
     Route: 048
  13. BISOMERCK [Concomitant]
     Route: 048
  14. DEXIUM [Concomitant]
     Route: 048
  15. VENOSTASIN [Concomitant]
     Route: 048
  16. OVESTIN [Concomitant]
     Route: 062

REACTIONS (2)
  - DRUG INTERACTION [None]
  - FALL [None]
